FAERS Safety Report 24429883 (Version 1)
Quarter: 2024Q4

REPORT INFORMATION
  Report Type: Spontaneous
  Country: US (occurrence: US)
  Receive Date: 20241012
  Receipt Date: 20241012
  Transmission Date: 20250114
  Serious: No
  Sender: IPSEN
  Company Number: US-IPSEN Group, Research and Development-2024-20469

PATIENT
  Age: 65 Year
  Sex: Female

DRUGS (4)
  1. DYSPORT [Suspect]
     Active Substance: ABOBOTULINUMTOXINA
     Indication: Skin wrinkling
     Dosage: 55 UNITS OF DYSPORT- INJECTIONS INTO THE GLABELLAR LINES, 3 INJECTIONS INTO FOREHEAD WRINKLES, 2 INJ
     Route: 065
     Dates: start: 20240903, end: 20240903
  2. DYSPORT [Suspect]
     Active Substance: ABOBOTULINUMTOXINA
     Indication: Skin wrinkling
     Dosage: ONE SYRINGE OF DYSPORT, INTO THE GLABELLA, AND CROWS FEET, FURTHER DESCRIBED AS TWO POKES IN THE GLA
     Route: 065
     Dates: start: 20240924, end: 20240924
  3. DYSPORT [Suspect]
     Active Substance: ABOBOTULINUMTOXINA
     Indication: Skin wrinkling
  4. DYSPORT [Suspect]
     Active Substance: ABOBOTULINUMTOXINA
     Indication: Off label use

REACTIONS (4)
  - Drug ineffective [Unknown]
  - Product preparation issue [Unknown]
  - Off label use [Unknown]
  - Off label use [Unknown]

NARRATIVE: CASE EVENT DATE: 20240901
